FAERS Safety Report 18229359 (Version 3)
Quarter: 2020Q3

REPORT INFORMATION
  Report Type: Spontaneous
  Country: JP (occurrence: JP)
  Receive Date: 20200903
  Receipt Date: 20200918
  Transmission Date: 20201103
  Serious: Yes (Death, Other)
  Sender: FDA-Public Use
  Company Number: JP-JAZZ-2020-JP-008272

PATIENT
  Age: 53 Year
  Sex: Female
  Weight: 63 kg

DRUGS (5)
  1. DEFITELIO [Suspect]
     Active Substance: DEFIBROTIDE SODIUM
     Dosage: 25 MILLIGRAM/KILOGRAM, QD
     Route: 042
     Dates: start: 20200803, end: 20200804
  2. DEFITELIO [Suspect]
     Active Substance: DEFIBROTIDE SODIUM
     Dosage: 25 MILLIGRAM/KILOGRAM, QD
     Route: 042
     Dates: start: 20200624, end: 20200727
  3. DEFITELIO [Suspect]
     Active Substance: DEFIBROTIDE SODIUM
     Indication: VENOOCCLUSIVE LIVER DISEASE
     Dosage: 50 MILLIGRAM/KILOGRAM, QD
     Route: 042
     Dates: start: 20200620, end: 20200624
  4. ACOALAN [Concomitant]
     Indication: ANTITHROMBIN III DEFICIENCY
     Dosage: UNK
     Dates: start: 20200721, end: 20200726
  5. ACOALAN [Concomitant]
     Dosage: UNK
     Dates: start: 20200728, end: 20200805

REACTIONS (6)
  - Venoocclusive liver disease [Fatal]
  - Condition aggravated [Fatal]
  - Liver abscess [Fatal]
  - Disease progression [Fatal]
  - Multiple organ dysfunction syndrome [Fatal]
  - Accidental overdose [Unknown]

NARRATIVE: CASE EVENT DATE: 2020
